FAERS Safety Report 8282482-0 (Version None)
Quarter: 2012Q2

REPORT INFORMATION
  Report Type: 
  Country: None (occurrence: None)
  Receive Date: 20120413
  Receipt Date: 20120409
  Transmission Date: 20120825
  Serious: Yes (Other)
  Sender: FDA-Public Use
  Company Number: US-ABBOTT-12P-163-0924244-00

PATIENT
  Sex: Female

DRUGS (2)
  1. CYTOMEL [Concomitant]
     Indication: PRODUCT USED FOR UNKNOWN INDICATION
  2. SYNTHROID [Suspect]
     Indication: PRODUCT USED FOR UNKNOWN INDICATION
     Dates: start: 20110101

REACTIONS (6)
  - PALPITATIONS [None]
  - COELIAC DISEASE [None]
  - LACTOSE INTOLERANCE [None]
  - FOOD INTOLERANCE [None]
  - PELVIC INFECTION [None]
  - UTERINE PROLAPSE [None]
